FAERS Safety Report 6838078-8 (Version None)
Quarter: 2010Q3

REPORT INFORMATION
  Report Type: 
  Country: None (occurrence: None)
  Receive Date: 20100713
  Receipt Date: 20070430
  Transmission Date: 20110219
  Serious: No
  Sender: FDA-Public Use
  Company Number: US-PFIZER INC-2007035155

PATIENT
  Sex: Female

DRUGS (3)
  1. CHANTIX [Suspect]
     Indication: SMOKING CESSATION THERAPY
     Dates: start: 20070101, end: 20070401
  2. VENOFER [Concomitant]
     Indication: ANAEMIA
     Dosage: 5 EVERY 1 MONTHS
  3. VENOFER [Concomitant]
     Dosage: 5 EVERY 2 MONTHS

REACTIONS (6)
  - ANXIETY [None]
  - BOREDOM [None]
  - DEPRESSION [None]
  - FATIGUE [None]
  - INSOMNIA [None]
  - STRESS [None]
